FAERS Safety Report 6261767-3 (Version None)
Quarter: 2009Q3

REPORT INFORMATION
  Report Type: 
  Country: None (occurrence: None)
  Receive Date: 20090707
  Receipt Date: 20090707
  Transmission Date: 20100115
  Serious: No
  Sender: FDA-Public Use
  Company Number: None

PATIENT
  Sex: Male
  Weight: 36.2878 kg

DRUGS (1)
  1. SINGULAIR [Suspect]
     Indication: MULTIPLE ALLERGIES
     Dosage: 5MG DAILY-PM PO
     Route: 048
     Dates: start: 20030101, end: 20090520

REACTIONS (3)
  - ABNORMAL BEHAVIOUR [None]
  - HYPOAESTHESIA [None]
  - PARAESTHESIA [None]
